FAERS Safety Report 5521374-4 (Version None)
Quarter: 2007Q4

REPORT INFORMATION
  Report Type: 
  Country: None (occurrence: None)
  Receive Date: 20071119
  Receipt Date: 20071115
  Transmission Date: 20080405
  Serious: Yes (Death)
  Sender: FDA-Public Use
  Company Number: US-GILEAD-2007-0013651

PATIENT
  Sex: Male

DRUGS (5)
  1. LETAIRIS [Suspect]
     Indication: PULMONARY HYPERTENSION
     Route: 065
  2. LASIX [Concomitant]
     Route: 065
     Dates: end: 20070929
  3. ISORDIL [Concomitant]
     Route: 065
     Dates: end: 20070929
  4. ASPIRIN [Concomitant]
     Route: 065
     Dates: end: 20070929
  5. APRESOLINE [Concomitant]
     Route: 048
     Dates: end: 20070929

REACTIONS (2)
  - CHRONIC OBSTRUCTIVE PULMONARY DISEASE [None]
  - PULMONARY HYPERTENSION [None]
